FAERS Safety Report 23390383 (Version 1)
Quarter: 2024Q1

REPORT INFORMATION
  Report Type: Spontaneous
  Country: CN (occurrence: CN)
  Receive Date: 20240111
  Receipt Date: 20240111
  Transmission Date: 20240410
  Serious: Yes (Other)
  Sender: FDA-Public Use
  Company Number: CN-SUN PHARMACEUTICAL INDUSTRIES LTD-2023R1-426731

PATIENT
  Age: 58 Year
  Sex: Male

DRUGS (3)
  1. OXALIPLATIN [Suspect]
     Active Substance: OXALIPLATIN
     Indication: Gastric cancer
     Dosage: 240 MILLIGRAM, D1 Q3W
     Route: 065
  2. OXALIPLATIN [Suspect]
     Active Substance: OXALIPLATIN
     Dosage: 230 MILLIGRAM, D1 Q3W
     Route: 065
  3. TEGAFUR [Concomitant]
     Active Substance: TEGAFUR
     Indication: Gastric cancer
     Dosage: 60 MILLIGRAM, BID, D1-14
     Route: 065

REACTIONS (1)
  - Non-cirrhotic portal hypertension [Unknown]
